FAERS Safety Report 4610300-8 (Version None)
Quarter: 2005Q1

REPORT INFORMATION
  Report Type: 
  Country: None (occurrence: None)
  Receive Date: 20050314
  Receipt Date: 20050301
  Transmission Date: 20050727
  Serious: Yes (Hospitalization, Other)
  Sender: FDA-Public Use
  Company Number: 2004093935

PATIENT
  Sex: Female
  Weight: 53.0709 kg

DRUGS (16)
  1. BEXTRA [Suspect]
     Indication: FIBROMYALGIA
     Dosage: (10 MG), ORAL
     Route: 048
     Dates: start: 20040101
  2. GABAPENTIN [Concomitant]
  3. VICODIN [Concomitant]
  4. ACETAMINOPHEN [Concomitant]
  5. TOCOPHEROL (TOCOPHEROL) [Concomitant]
  6. THERAGRAN (VITAMINS NOS) [Concomitant]
  7. BELLADENAL (BELLADONNA EXTRACT, PHENOBARBITAL) [Concomitant]
  8. CONJUGATED ESTROGENS [Concomitant]
  9. LEVOTHYROXINE SODIUM [Concomitant]
  10. ALPRAZOLAM [Concomitant]
  11. CHLORDIAZEPOXIDE W/AMITRIPTYLINE (AMITRIPTYLINE, CHLORDIAZEPOXIDE) [Concomitant]
  12. AMITRIPTYLINE HCL [Concomitant]
  13. ESTAZOLAM [Concomitant]
  14. DONNATAL (ATROPINE SULFATE, HYOSCINE HYDROBROMIDE, HYOSCYAMINE SULFATE [Concomitant]
  15. BIOTIN [Concomitant]
  16. ESTAZOLAM [Concomitant]

REACTIONS (5)
  - ABASIA [None]
  - INSOMNIA [None]
  - JOINT SWELLING [None]
  - PAIN [None]
  - STRESS [None]
